FAERS Safety Report 6788176-2 (Version None)
Quarter: 2010Q2

REPORT INFORMATION
  Report Type: 
  Country: None (occurrence: None)
  Receive Date: 20100623
  Receipt Date: 20080213
  Transmission Date: 20101027
  Serious: No
  Sender: FDA-Public Use
  Company Number: US-PFIZER INC-2008003388

PATIENT
  Sex: Female
  Weight: 90.72 kg

DRUGS (3)
  1. XALATAN [Suspect]
     Indication: GLAUCOMA
     Route: 047
     Dates: start: 20071229
  2. AVANDIA [Concomitant]
     Indication: GLUCOSE TOLERANCE IMPAIRED
  3. WELLBUTRIN [Concomitant]
     Indication: DEPRESSION

REACTIONS (1)
  - PRODUCT QUALITY ISSUE [None]
